FAERS Safety Report 16308216 (Version 2)
Quarter: 2019Q2

REPORT INFORMATION
  Report Type: Spontaneous
  Country: JP (occurrence: JP)
  Receive Date: 20190514
  Receipt Date: 20190529
  Transmission Date: 20190711
  Serious: Yes (Other)
  Sender: FDA-Public Use
  Company Number: JP-TEVA-2019-JP-002699J

PATIENT
  Age: 8 Decade
  Sex: Male

DRUGS (2)
  1. AMOLIN CAPSULES 125 [Suspect]
     Active Substance: AMOXICILLIN
     Indication: PRODUCT USED FOR UNKNOWN INDICATION
     Route: 048
  2. GASTER [Suspect]
     Active Substance: FAMOTIDINE
     Route: 048

REACTIONS (1)
  - Acute kidney injury [Unknown]
